FAERS Safety Report 5635760-5 (Version None)
Quarter: 2008Q1

REPORT INFORMATION
  Report Type: 
  Country: None (occurrence: None)
  Receive Date: 20080223
  Receipt Date: 20080213
  Transmission Date: 20080703
  Serious: Yes (Hospitalization)
  Sender: FDA-Public Use
  Company Number: US-ELI_LILLY_AND_COMPANY-US200802002897

PATIENT
  Sex: Male
  Weight: 102.49 kg

DRUGS (8)
  1. BYETTA [Suspect]
     Dosage: 5 UG, 2/D
     Route: 058
     Dates: start: 20071201, end: 20080101
  2. BYETTA [Suspect]
     Dosage: 10 UG, 2/D
     Route: 058
     Dates: start: 20080101, end: 20080211
  3. BYETTA [Suspect]
     Dosage: 10 UG, 2/D
     Route: 058
     Dates: start: 20080212
  4. NORCO [Concomitant]
     Indication: BACK PAIN
     Dosage: UNK, AS NEEDED
  5. METHADONE HYDROCHLORIDE [Concomitant]
     Indication: BACK PAIN
     Dosage: UNK, AS NEEDED
  6. SKELAXIN [Concomitant]
     Indication: BACK PAIN
     Dosage: UNK, AS NEEDED
  7. NEURONTIN [Concomitant]
     Indication: BACK PAIN
     Dosage: 600 MG, DAILY (1/D)
     Route: 048
  8. VALIUM [Concomitant]
     Indication: NECK PAIN

REACTIONS (8)
  - BLOOD GLUCOSE INCREASED [None]
  - BLOOD PRESSURE INCREASED [None]
  - CHEST PAIN [None]
  - COLD SWEAT [None]
  - HYPERHIDROSIS [None]
  - NAUSEA [None]
  - VOMITING [None]
  - WEIGHT DECREASED [None]
